FAERS Safety Report 18751298 (Version 1)
Quarter: 2021Q1

REPORT INFORMATION
  Report Type: Report from Study
  Country: TR (occurrence: TR)
  Receive Date: 20210118
  Receipt Date: 20210118
  Transmission Date: 20210419
  Serious: Yes (Other)
  Sender: FDA-Public Use
  Company Number: TR-ASTELLAS-2021US001688

PATIENT
  Age: 13 Year
  Sex: Male

DRUGS (3)
  1. MICAFUNGIN. [Concomitant]
     Active Substance: MICAFUNGIN SODIUM
     Indication: PRODUCT USED FOR UNKNOWN INDICATION
     Dosage: UNK UNK, UNKNOWN FREQ.
     Route: 065
  2. CASPOFUNGIN [Concomitant]
     Active Substance: CASPOFUNGIN
     Indication: PRODUCT USED FOR UNKNOWN INDICATION
     Dosage: UNK UNK, UNKNOWN FREQ.
     Route: 065
  3. AMPHOTERICIN B, LIPOSOME [Suspect]
     Active Substance: AMPHOTERICIN B
     Indication: FEBRILE NEUTROPENIA
     Dosage: UNK UNK, UNKNOWN FREQ.
     Route: 065

REACTIONS (1)
  - Drug ineffective [Recovered/Resolved]
